FAERS Safety Report 4841276-6 (Version None)
Quarter: 2005Q4

REPORT INFORMATION
  Report Type: 
  Country: None (occurrence: None)
  Receive Date: 20051130
  Receipt Date: 20030428
  Transmission Date: 20060501
  Serious: Yes (Death, Life-Threatening)
  Sender: FDA-Public Use
  Company Number: PHHO2003IT05454

PATIENT
  Age: 51 Year
  Sex: Male
  Weight: 85 kg

DRUGS (4)
  1. FK [Suspect]
     Indication: LIVER TRANSPLANT
     Dosage: 0.5 MG/DAY
     Dates: start: 20030428
  2. NEORAL [Suspect]
     Indication: LIVER TRANSPLANT
     Dosage: 750 MG/DAY
     Dates: start: 20030419
  3. MYCOPHENOLATE MOFETIL [Suspect]
     Indication: LIVER TRANSPLANT
     Dosage: 2 G/DAY
     Dates: start: 20030419
  4. SIMULECT V PREDNISONE/METHYLPREDNISOLONE [Suspect]
     Indication: LIVER TRANSPLANT
     Dosage: 25 MG/DAY
     Dates: start: 20030419

REACTIONS (4)
  - MULTI-ORGAN FAILURE [None]
  - PNEUMONIA [None]
  - RENAL FAILURE [None]
  - SEPSIS [None]
